FAERS Safety Report 6115922-3 (Version None)
Quarter: 2009Q1

REPORT INFORMATION
  Report Type: 
  Country: None (occurrence: None)
  Receive Date: 20090311
  Receipt Date: 20090303
  Transmission Date: 20090719
  Serious: Yes (Other)
  Sender: FDA-Public Use
  Company Number: CAP09000050

PATIENT
  Age: 73 Year
  Sex: Female

DRUGS (5)
  1. ETIDRONATE DISODIUM [Suspect]
     Indication: OSTEOPOROSIS
     Dosage: 1 TABLET DAILY, ORAL
     Route: 048
     Dates: start: 19990101
  2. SURMONTIL /00051801/ (TRIMIPRAMINE) [Concomitant]
  3. TYLENOL /0002001/ (PARACETAMOL) [Concomitant]
  4. DILAUDID [Concomitant]
  5. TRAMADOL HCL [Concomitant]

REACTIONS (4)
  - DRUG DOSE OMISSION [None]
  - FALL [None]
  - LUNG NEOPLASM MALIGNANT [None]
  - MEMORY IMPAIRMENT [None]
